FAERS Safety Report 8522538-8 (Version None)
Quarter: 2012Q3

REPORT INFORMATION
  Report Type: 
  Country: None (occurrence: None)
  Receive Date: 20120719
  Receipt Date: 20120712
  Transmission Date: 20120928
  Serious: No
  Sender: FDA-Public Use
  Company Number: US-PFIZER INC-2012164351

PATIENT
  Sex: Female
  Weight: 102 kg

DRUGS (9)
  1. TRICOR [Concomitant]
     Indication: BLOOD VISCOSITY INCREASED
     Dosage: 25 MG, DAILY
     Route: 048
  2. TRICOR [Concomitant]
     Indication: BLOOD TRIGLYCERIDES
     Dosage: 10 MG, DAILY
     Route: 048
  3. XANAX [Suspect]
     Dosage: 2 MG, UNK
     Route: 048
  4. ALPRAZOLAM [Suspect]
     Indication: ANXIETY
     Dosage: 3 MG (1 AND HALF TABLETS OF 2MG) , 3X/DAY
     Route: 048
     Dates: start: 20120706
  5. XANAX [Suspect]
     Dosage: 1 MG, UNK
     Route: 048
  6. ALPRAZOLAM [Suspect]
     Indication: ATTENTION DEFICIT/HYPERACTIVITY DISORDER
  7. TRICOR [Concomitant]
     Indication: BLOOD CHOLESTEROL ABNORMAL
  8. XANAX [Suspect]
     Indication: ANXIETY
     Dosage: 1 MG; QUARTER TABLET
     Route: 048
  9. XANAX [Suspect]
     Dosage: 0.5 MG, UNK
     Route: 048

REACTIONS (8)
  - ANXIETY [None]
  - EMOTIONAL DISORDER [None]
  - CRYING [None]
  - AGITATION [None]
  - FEELING ABNORMAL [None]
  - PANIC ATTACK [None]
  - DRUG INEFFECTIVE [None]
  - CIRCUMSTANCE OR INFORMATION CAPABLE OF LEADING TO MEDICATION ERROR [None]
